FAERS Safety Report 6739429-5 (Version None)
Quarter: 2010Q2

REPORT INFORMATION
  Report Type: 
  Country: None (occurrence: None)
  Receive Date: 20100525
  Receipt Date: 20100412
  Transmission Date: 20101027
  Serious: No
  Sender: FDA-Public Use
  Company Number: US-TYCO HEALTHCARE/MALLINCKRODT-T201000960

PATIENT

DRUGS (1)
  1. ACETAMINOPHEN AND HYDROCODONE BITARTRATE [Suspect]
     Dosage: UNK

REACTIONS (6)
  - CHEST PAIN [None]
  - EAR PAIN [None]
  - HEADACHE [None]
  - NECK PAIN [None]
  - ORAL PAIN [None]
  - PAIN IN JAW [None]
